FAERS Safety Report 5892166-1 (Version None)
Quarter: 2008Q3

REPORT INFORMATION
  Report Type: 
  Country: None (occurrence: None)
  Receive Date: 20080922
  Receipt Date: 20080910
  Transmission Date: 20090109
  Serious: Yes (Life-Threatening, Hospitalization)
  Sender: FDA-Public Use
  Company Number: US-AMGEN-US307049

PATIENT
  Sex: Male

DRUGS (1)
  1. PANITUMUMAB [Suspect]
     Indication: NEOPLASM
     Route: 042
     Dates: start: 20080909

REACTIONS (4)
  - ACIDOSIS [None]
  - APNOEA [None]
  - CONVULSION [None]
  - GRAND MAL CONVULSION [None]
